FAERS Safety Report 21045624 (Version 2)
Quarter: 2022Q3

REPORT INFORMATION
  Report Type: Report from Study
  Country: TW (occurrence: None)
  Receive Date: 20220706
  Receipt Date: 20220811
  Transmission Date: 20221027
  Serious: Yes (Hospitalization)
  Sender: FDA-Public Use
  Company Number: TW-ROCHE-3131474

PATIENT
  Age: 47 Year
  Sex: Male

DRUGS (24)
  1. ATEZOLIZUMAB [Suspect]
     Active Substance: ATEZOLIZUMAB
     Indication: Hepatocellular carcinoma
     Dosage: LAST DATE OF ADMINISTERED BEFORE SAE: 08/JUN/2022
     Route: 042
     Dates: start: 20220518
  2. BEVACIZUMAB [Suspect]
     Active Substance: BEVACIZUMAB
     Indication: Hepatocellular carcinoma
     Dosage: LAST DATE OF ADMINISTERED BEFORE SAE: 08/JUN/2022
     Route: 042
     Dates: start: 20220518
  3. ENTECAVIR [Concomitant]
     Active Substance: ENTECAVIR
     Route: 048
  4. FENTANYL [Concomitant]
     Active Substance: FENTANYL
     Dosage: DOSE-12 MGHR PATCH
     Route: 062
  5. MORPHINE SULFATE [Concomitant]
     Active Substance: MORPHINE SULFATE
     Route: 048
  6. DEXLANSOPRAZOLE [Concomitant]
     Active Substance: DEXLANSOPRAZOLE
     Route: 048
  7. METHOCARBAMOL [Concomitant]
     Active Substance: METHOCARBAMOL
     Route: 048
  8. METHYLCOBALAMIN [Concomitant]
     Active Substance: METHYLCOBALAMIN
     Route: 048
  9. METHYLPREDNISOLONE [Concomitant]
     Active Substance: METHYLPREDNISOLONE
     Dates: start: 20220621, end: 20220623
  10. METHYLPREDNISOLONE [Concomitant]
     Active Substance: METHYLPREDNISOLONE
  11. METHYLPREDNISOLONE [Concomitant]
     Active Substance: METHYLPREDNISOLONE
  12. KABIVEN [Concomitant]
     Active Substance: AMINO ACIDS\ANHYDROUS DEXTROSE\CALCIUM CHLORIDE\MAGNESIUM SULFATE HEPTAHYDRATE\POTASSIUM CHLORIDE\SO
     Dates: start: 20220621, end: 20220623
  13. KABIVEN [Concomitant]
     Active Substance: AMINO ACIDS\ANHYDROUS DEXTROSE\CALCIUM CHLORIDE\MAGNESIUM SULFATE HEPTAHYDRATE\POTASSIUM CHLORIDE\SO
     Route: 041
     Dates: start: 20220624
  14. TEICOPLANIN [Concomitant]
     Active Substance: TEICOPLANIN
  15. MORPHINE [Concomitant]
     Active Substance: MORPHINE
     Indication: Pain
     Dosage: AT THE RATE OF 80 ML/HOUR
     Route: 042
  16. LASIX [Concomitant]
     Active Substance: FUROSEMIDE
  17. CEFTAZIDIME [Concomitant]
     Active Substance: CEFTAZIDIME
  18. CEFTAZIDIME [Concomitant]
     Active Substance: CEFTAZIDIME
  19. ULTRACET [Concomitant]
     Active Substance: ACETAMINOPHEN\TRAMADOL HYDROCHLORIDE
  20. SODIUM CHLORIDE [Concomitant]
     Active Substance: SODIUM CHLORIDE
  21. KCL [Concomitant]
     Active Substance: POTASSIUM CHLORIDE
     Dosage: AT THE RATE OF 100 ML/HOUR WAS GIVEN
     Dates: start: 20220624
  22. SOLU-MEDROL [Concomitant]
     Active Substance: METHYLPREDNISOLONE SODIUM SUCCINATE
  23. HALOPERIDOL [Concomitant]
     Active Substance: HALOPERIDOL
     Indication: Delirium
  24. NEOMYCIN [Concomitant]
     Active Substance: NEOMYCIN

REACTIONS (1)
  - Toxic epidermal necrolysis [Recovered/Resolved]

NARRATIVE: CASE EVENT DATE: 20220617
